FAERS Safety Report 18846152 (Version 2)
Quarter: 2021Q1

REPORT INFORMATION
  Report Type: Spontaneous
  Country: JO (occurrence: JO)
  Receive Date: 20210203
  Receipt Date: 20210210
  Transmission Date: 20210419
  Serious: Yes (Hospitalization, Other)
  Sender: FDA-Public Use
  Company Number: JO-BAXTER-2021BAX002302

PATIENT
  Age: 63 Year
  Sex: Male

DRUGS (2)
  1. DOXIL [Suspect]
     Active Substance: DOXORUBICIN HYDROCHLORIDE
     Indication: TRANSITIONAL CELL CARCINOMA
     Dosage: 50 ML DILUTED IN 100 CC OF SALINE (50 ML)
     Route: 043
  2. SALINE [Concomitant]
     Active Substance: SODIUM CHLORIDE
     Indication: PRODUCT USED FOR UNKNOWN INDICATION
     Dosage: 50 ML DILUTED IN 100 CC OF SALINE
     Route: 065

REACTIONS (1)
  - Bladder perforation [Recovered/Resolved]
